FAERS Safety Report 9503645 (Version 1)
Quarter: 2013Q3

REPORT INFORMATION
  Report Type: Spontaneous
  Country: US (occurrence: US)
  Receive Date: 20130906
  Receipt Date: 20130906
  Transmission Date: 20140515
  Serious: Yes (Hospitalization, Other)
  Sender: FDA-Public Use
  Company Number: US-009507513-1309USA001382

PATIENT
  Sex: Female

DRUGS (3)
  1. JANUVIA [Suspect]
     Route: 048
  2. GLYBURIDE [Suspect]
  3. ACTOS [Suspect]

REACTIONS (6)
  - Blood glucose abnormal [Unknown]
  - Coma [Unknown]
  - Vitamin B12 decreased [Unknown]
  - Anaemia [Unknown]
  - Balance disorder [Unknown]
  - Adverse event [Unknown]
